FAERS Safety Report 9544246 (Version 3)
Quarter: 2013Q4

REPORT INFORMATION
  Report Type: Spontaneous
  Country: FR (occurrence: FR)
  Receive Date: 20130923
  Receipt Date: 20131122
  Transmission Date: 20140711
  Serious: Yes (Other)
  Sender: FDA-Public Use
  Company Number: ALCN2013FR004762

PATIENT
  Age: 78 Year
  Sex: Female

DRUGS (5)
  1. AZARGA [Suspect]
     Dosage: UNK
     Route: 047
     Dates: start: 20130620, end: 20130731
  2. AZOPT [Suspect]
     Indication: GLAUCOMA
     Dosage: UNK
     Route: 047
     Dates: start: 2009, end: 20130620
  3. AZOPT [Suspect]
     Dosage: UNK
     Route: 047
     Dates: start: 20130731
  4. PILOCARPINE HYDROCHLORIDE [Concomitant]
     Dosage: UNK
     Route: 047
     Dates: start: 20130731
  5. ALDACTONE [Concomitant]
     Indication: HYPERTENSION
     Dosage: UNK

REACTIONS (4)
  - Blood thyroid stimulating hormone decreased [Unknown]
  - Basedow^s disease [Unknown]
  - Respiratory disorder [Unknown]
  - Malaise [Unknown]
